FAERS Safety Report 5089756-5 (Version None)
Quarter: 2006Q3

REPORT INFORMATION
  Report Type: 
  Country: None (occurrence: None)
  Receive Date: 20060731
  Receipt Date: 20060227
  Transmission Date: 20061208
  Serious: Yes (Other)
  Sender: FDA-Public Use
  Company Number: US200602005646

PATIENT
  Age: 73 Year
  Sex: Female

DRUGS (3)
  1. FORTEO [Suspect]
     Indication: OSTEOPOROSIS
     Dates: start: 20051201, end: 20060101
  2. FORTEO [Concomitant]
  3. SYNTHROID [Concomitant]

REACTIONS (5)
  - ASTHENIA [None]
  - BONE PAIN [None]
  - HAEMATURIA [None]
  - HAEMOGLOBIN ABNORMAL [None]
  - PAIN [None]
